FAERS Safety Report 9919854 (Version 1)
Quarter: 2014Q1

REPORT INFORMATION
  Report Type: Spontaneous
  Country: FR (occurrence: FR)
  Receive Date: 20140224
  Receipt Date: 20140224
  Transmission Date: 20141002
  Serious: Yes (Other)
  Sender: FDA-Public Use
  Company Number: PHHY2014FR021755

PATIENT
  Age: 66 Year
  Sex: Female

DRUGS (2)
  1. ACLASTA [Suspect]
     Indication: OSTEOPOROSIS
     Dosage: 5 MG, UNK
     Route: 042
     Dates: start: 201310
  2. OROCAL [Concomitant]
     Dosage: UNK

REACTIONS (4)
  - Cardiac disorder [Unknown]
  - Palpitations [Unknown]
  - Tooth disorder [Unknown]
  - Tinnitus [Unknown]
